FAERS Safety Report 9536878 (Version 1)
Quarter: 2013Q4

REPORT INFORMATION
  Report Type: Spontaneous
  Country: US (occurrence: None)
  Receive Date: 20130918
  Receipt Date: 20130918
  Transmission Date: 20140711
  Serious: Yes (Hospitalization)
  Sender: FDA-Public Use
  Company Number: None

PATIENT
  Age: 65 Year
  Sex: Female
  Weight: 119.8 kg

DRUGS (1)
  1. HYDROXYCHLOROQUINE [Suspect]
     Indication: PLASMA CELL MYELOMA
     Dosage: 3 TABLETS  PO  QD
     Route: 048
     Dates: start: 20130910, end: 20130914

REACTIONS (4)
  - Rash erythematous [None]
  - Rash pruritic [None]
  - Feeling hot [None]
  - Rash macular [None]
